FAERS Safety Report 4997995-4 (Version None)
Quarter: 2006Q2

REPORT INFORMATION
  Report Type: 
  Country: None (occurrence: None)
  Receive Date: 20060510
  Receipt Date: 20060428
  Transmission Date: 20061013
  Serious: Yes (Hospitalization)
  Sender: FDA-Public Use
  Company Number: US-ROCHE-446191

PATIENT
  Age: 53 Year
  Sex: Male
  Weight: 96.4 kg

DRUGS (20)
  1. PEG-INTERFERON ALFA 2A (RO 25-8310) [Suspect]
     Indication: HEPATITIS C
     Route: 058
     Dates: start: 20060303, end: 20060427
  2. RIBAVIRIN [Suspect]
     Indication: HEPATITIS C
     Route: 048
     Dates: start: 20060303, end: 20060427
  3. LABETALOL [Suspect]
     Indication: HYPERTENSION
     Route: 065
     Dates: start: 20060303
  4. CALCIUM GLUCONATE [Concomitant]
  5. ASPIRIN [Concomitant]
     Dates: start: 20051118
  6. BACTRIM [Concomitant]
     Dosage: REPORTED AS '160/WEEK'
     Dates: start: 20051118
  7. VICODIN [Concomitant]
     Dates: start: 20051118
  8. VALCYTE [Concomitant]
     Dates: start: 20051121
  9. TRAMADOL HCL [Concomitant]
     Dates: start: 20051128
  10. MAGNESIUM OXIDE [Concomitant]
     Dates: start: 20051205
  11. LACTULOSE [Concomitant]
     Dates: start: 20051207
  12. PREDNISONE TAB [Concomitant]
     Dates: start: 20051210
  13. ACIPHEX [Concomitant]
     Dates: start: 20051229
  14. NYSTATIN [Concomitant]
     Dates: start: 20060130
  15. CYCLOSPORINE [Concomitant]
     Dosage: (USE MODIFIED)
     Dates: start: 20060405
  16. LASIX [Concomitant]
     Dates: start: 20060301
  17. POTASSIUM [Concomitant]
     Dates: start: 20060301
  18. PAXIL [Concomitant]
  19. DESYREL [Concomitant]
     Dates: start: 20060413
  20. CIPRO [Concomitant]
     Dates: start: 20060425

REACTIONS (1)
  - ORTHOSTATIC HYPOTENSION [None]
